FAERS Safety Report 5208949-7 (Version None)
Quarter: 2007Q1

REPORT INFORMATION
  Report Type: 
  Country: None (occurrence: None)
  Receive Date: 20070111
  Receipt Date: 20070111
  Transmission Date: 20070707
  Serious: Yes (Hospitalization)
  Sender: FDA-Public Use
  Company Number: None

PATIENT
  Sex: Female
  Weight: 73.7095 kg

DRUGS (1)
  1. CARBOPLATIN [Suspect]
     Indication: OVARIAN CANCER
     Dosage: 750 MG EVERY 21 DAYS INTRAPERITO
     Route: 033
     Dates: start: 20051007, end: 20051007

REACTIONS (2)
  - RESPIRATORY DISTRESS [None]
  - URTICARIA [None]
